FAERS Safety Report 9816847 (Version 1)
Quarter: 2014Q1

REPORT INFORMATION
  Report Type: Spontaneous
  Country: US (occurrence: US)
  Receive Date: 20140114
  Receipt Date: 20140114
  Transmission Date: 20141002
  Serious: No
  Sender: FDA-Public Use
  Company Number: US-ENDO PHARMACEUTICALS INC.-ENDC20130020

PATIENT
  Sex: Female

DRUGS (3)
  1. ENDOCET 10MG/650MG [Suspect]
     Indication: PAIN
     Dosage: 10/650 MG
     Route: 048
  2. ALPRAZOLAM IR TABLETS [Concomitant]
     Indication: PRODUCT USED FOR UNKNOWN INDICATION
     Dosage: UNKNOWN
     Route: 048
  3. METOPROLOL [Concomitant]
     Indication: HYPERTENSION
     Dosage: UNKNOWN
     Route: 048

REACTIONS (2)
  - Coeliac disease [Not Recovered/Not Resolved]
  - Dermatitis herpetiformis [Not Recovered/Not Resolved]
